FAERS Safety Report 5527881-2 (Version None)
Quarter: 2007Q4

REPORT INFORMATION
  Report Type: 
  Country: None (occurrence: None)
  Receive Date: 20071123
  Receipt Date: 20071108
  Transmission Date: 20080405
  Serious: Yes (Life-Threatening)
  Sender: FDA-Public Use
  Company Number: 17853

PATIENT
  Age: 85 Year
  Sex: Female

DRUGS (23)
  1. ATRACURIUM [Suspect]
     Indication: PERIOPERATIVE ANALGESIA
     Dosage: 40 MG ONCE IV
     Route: 042
     Dates: start: 20061120
  2. GRANISETRON [Suspect]
     Indication: PROPHYLAXIS OF NAUSEA AND VOMITING
     Dosage: 0.2 MG FREQ IV
     Route: 042
     Dates: start: 20061120, end: 20061120
  3. ALENDRONIC ACID [Concomitant]
  4. ASPIRIN [Concomitant]
  5. BETAXOLOL [Concomitant]
  6. BUMETANIDE [Concomitant]
  7. CALCIUM CARBONATE [Concomitant]
  8. CEFUROXIME [Concomitant]
  9. CO-CODAMOL [Concomitant]
  10. ETOMIDATE [Concomitant]
  11. FENTANYL [Concomitant]
  12. FERROUS GLUCONATE [Concomitant]
  13. GABAPENTIN [Concomitant]
  14. GLYCERYL TRINITRATE [Concomitant]
  15. ISOFLURANE [Concomitant]
  16. METARAMINOL [Concomitant]
  17. METRONIDAZOLE [Concomitant]
  18. MIDAZOLAM HCL [Concomitant]
  19. PARACETAMOL [Concomitant]
  20. SIMVASTATIN [Concomitant]
  21. SPIRONOLACTONE [Concomitant]
  22. SUXAMETHONIUM [Concomitant]
  23. TEMAZEPAM [Concomitant]

REACTIONS (2)
  - DRUG INTERACTION [None]
  - VENTRICULAR FIBRILLATION [None]
